FAERS Safety Report 5337280-4 (Version None)
Quarter: 2007Q2

REPORT INFORMATION
  Report Type: 
  Country: None (occurrence: None)
  Receive Date: 20070529
  Receipt Date: 20070516
  Transmission Date: 20071010
  Serious: Yes (Death)
  Sender: FDA-Public Use
  Company Number: B0472343A

PATIENT
  Age: 78 Year
  Sex: Female

DRUGS (2)
  1. CEFAMEZIN [Suspect]
     Indication: PROPHYLAXIS
     Route: 065
     Dates: start: 19990101, end: 19990101
  2. PREDNISOLONE [Concomitant]
     Dosage: 7.5MG UNKNOWN
     Route: 048

REACTIONS (6)
  - ABDOMINAL DISCOMFORT [None]
  - CONDITION AGGRAVATED [None]
  - DIARRHOEA [None]
  - ILEUS PARALYTIC [None]
  - MEGACOLON [None]
  - PSEUDOMEMBRANOUS COLITIS [None]
